FAERS Safety Report 10038107 (Version 2)
Quarter: 2014Q2

REPORT INFORMATION
  Report Type: Spontaneous
  Country: US (occurrence: US)
  Receive Date: 20140326
  Receipt Date: 20140508
  Transmission Date: 20141212
  Serious: Yes (Other)
  Sender: FDA-Public Use
  Company Number: US-THROMBOGENICS INC.-JET-2014-114

PATIENT
  Age: 74 Year
  Sex: Female

DRUGS (1)
  1. JETREA [Suspect]
     Indication: VITREOUS ADHESIONS
     Dosage: 0.125 MG, ONE TIME DOSE
     Route: 031

REACTIONS (16)
  - Retinal injury [Unknown]
  - Cystoid macular oedema [Recovering/Resolving]
  - Retinal oedema [Unknown]
  - Vitreous adhesions [Recovering/Resolving]
  - Disease progression [Recovered/Resolved]
  - Visual impairment [Unknown]
  - Vitreous floaters [Recovered/Resolved]
  - Visual impairment [Unknown]
  - Metamorphopsia [Recovering/Resolving]
  - Chromatopsia [Recovered/Resolved]
  - Retinogram abnormal [Recovering/Resolving]
  - Visual acuity reduced [Recovered/Resolved]
  - Vision blurred [Unknown]
  - Ocular discomfort [Recovered/Resolved]
  - Anterior chamber cell [Recovered/Resolved]
  - Vitreous disorder [Recovered/Resolved]
